FAERS Safety Report 9349214 (Version 2)
Quarter: 2013Q4

REPORT INFORMATION
  Report Type: Spontaneous
  Country: US (occurrence: US)
  Receive Date: 20130614
  Receipt Date: 20131202
  Transmission Date: 20140711
  Serious: No
  Sender: FDA-Public Use
  Company Number: US-B.I. PHARMACEUTICALS,INC./RIDGEFIELD-2013-BI-16739BP

PATIENT
  Sex: Male
  Weight: 89.81 kg

DRUGS (14)
  1. PRADAXA [Suspect]
     Indication: ATRIAL FIBRILLATION
     Dates: start: 20110427, end: 20120314
  2. DIOVAN [Concomitant]
  3. NORVASC [Concomitant]
     Dosage: 5 MG
  4. BYSTOLIC [Concomitant]
     Dosage: 5 MG
  5. SPIRONOLACTONE [Concomitant]
     Dosage: 25 MG
  6. FUROSEMIDE [Concomitant]
     Dosage: 20 MG
  7. VYTORIN [Concomitant]
     Dates: end: 2012
  8. AMARYL [Concomitant]
     Dosage: 2 MG
     Dates: start: 2009
  9. DOK [Concomitant]
     Dosage: 500 MG
     Dates: start: 2007
  10. OYST-CAL [Concomitant]
     Dosage: 1000 MG
     Dates: start: 2007
  11. ALLOPURINOL [Concomitant]
     Dosage: 300 MG
     Dates: start: 2010
  12. COLCRYS [Concomitant]
     Dosage: 0.6 MG
  13. AVODART [Concomitant]
     Dosage: 0.5 MG
     Dates: start: 2007, end: 2012
  14. DETROL LA [Concomitant]
     Dosage: 4 MG
     Dates: start: 2007, end: 2012

REACTIONS (4)
  - Haemoptysis [Unknown]
  - Gastritis haemorrhagic [Unknown]
  - Duodenitis [Unknown]
  - Rectal haemorrhage [Unknown]
